FAERS Safety Report 7202028-5 (Version None)
Quarter: 2010Q4

REPORT INFORMATION
  Report Type: 
  Country: None (occurrence: None)
  Receive Date: 20101229
  Receipt Date: 20101221
  Transmission Date: 20110411
  Serious: Yes (Other)
  Sender: FDA-Public Use
  Company Number: CA-JNJFOC-20101208322

PATIENT
  Sex: Female

DRUGS (3)
  1. REMICADE [Suspect]
     Indication: VOGT-KOYANAGI-HARADA SYNDROME
     Route: 042
  2. ACETAMINOPHEN [Concomitant]
     Route: 048
  3. HYDROCORTISONE [Concomitant]
     Route: 042

REACTIONS (1)
  - SYSTEMIC LUPUS ERYTHEMATOSUS [None]
